FAERS Safety Report 16087927 (Version 1)
Quarter: 2019Q1

REPORT INFORMATION
  Report Type: Report from Study
  Country: US (occurrence: US)
  Receive Date: 20190319
  Receipt Date: 20190319
  Transmission Date: 20190418
  Serious: Yes (Hospitalization)
  Sender: FDA-Public Use
  Company Number: US-GILEAD-2019-0388118

PATIENT
  Age: 72 Year
  Sex: Female

DRUGS (3)
  1. WARFARIN [Concomitant]
     Active Substance: WARFARIN
  2. OPSUMIT [Concomitant]
     Active Substance: MACITENTAN
     Dosage: UNK
     Dates: start: 20190305
  3. AMBRISENTAN [Suspect]
     Active Substance: AMBRISENTAN
     Indication: PULMONARY HYPERTENSION
     Dosage: 10 MG, QD
     Route: 065
     Dates: start: 20160217

REACTIONS (6)
  - Dyspnoea [Unknown]
  - Stress [Unknown]
  - Feeling hot [Unknown]
  - Fatigue [Not Recovered/Not Resolved]
  - Rash generalised [Not Recovered/Not Resolved]
  - Intentional dose omission [Not Recovered/Not Resolved]

NARRATIVE: CASE EVENT DATE: 2018
